FAERS Safety Report 5066581-2 (Version None)
Quarter: 2006Q3

REPORT INFORMATION
  Report Type: 
  Country: None (occurrence: None)
  Receive Date: 20060728
  Receipt Date: 20060714
  Transmission Date: 20061208
  Serious: Yes (Death, Hospitalization)
  Sender: FDA-Public Use
  Company Number: 226661

PATIENT
  Sex: Female

DRUGS (2)
  1. RITUXAN [Suspect]
     Indication: RHEUMATOID ARTHRITIS
  2. DMARD DRUG ((ANTIRHEUMATIC + ANTI-INFLAMMATORY AGENTS) [Concomitant]

REACTIONS (2)
  - PNEUMONITIS [None]
  - RENAL FAILURE [None]
